FAERS Safety Report 4928860-6 (Version None)
Quarter: 2006Q1

REPORT INFORMATION
  Report Type: 
  Country: None (occurrence: None)
  Receive Date: 20060301
  Receipt Date: 20050808
  Transmission Date: 20060701
  Serious: Yes (Death, Hospitalization, Disabling)
  Sender: FDA-Public Use
  Company Number: 2005CG01361

PATIENT
  Age: 851 Month
  Sex: Female
  Weight: 60 kg

DRUGS (11)
  1. IRESSA [Suspect]
     Indication: OVARIAN CANCER
     Route: 048
     Dates: start: 20020430, end: 20020509
  2. IRESSA [Suspect]
     Route: 048
     Dates: start: 20020512, end: 20020622
  3. TAXOL [Suspect]
     Indication: OVARIAN CANCER
     Route: 042
     Dates: start: 20020430
  4. PARAPLATIN [Suspect]
     Indication: OVARIAN CANCER
     Route: 042
     Dates: start: 20020430
  5. CARBOPLATINE [Concomitant]
     Indication: OVARIAN CANCER
     Dosage: TOAL DOSE RECEIVED: 2700 MG
     Dates: start: 19990730, end: 19991209
  6. CARBOPLATINE [Concomitant]
     Dosage: TOTAL DOSE RECEIVED: 1960 MG
     Dates: start: 20031107, end: 20040123
  7. CARBOPLATINE [Concomitant]
     Dosage: TOTAL DOSE RECEIVED: 680 MG
     Dates: start: 20041116, end: 20041214
  8. TAXOL [Concomitant]
     Dosage: TOTAL DOSE RECEIVED: 750 MG
     Dates: start: 19990730, end: 19991209
  9. PSC 833 [Concomitant]
     Indication: OVARIAN CANCER
     Dosage: TOTAL DOSE RECEIVED: 1710 MG
     Dates: start: 19990730, end: 19991209
  10. OXALIPLATIN [Concomitant]
     Indication: OVARIAN CANCER
     Dosage: TOTAL DOSE RECEIVED: 620 MG
     Dates: start: 20050111, end: 20050303
  11. DEROXAT [Concomitant]

REACTIONS (1)
  - MYELODYSPLASTIC SYNDROME [None]
